FAERS Safety Report 24414406 (Version 1)
Quarter: 2024Q4

REPORT INFORMATION
  Report Type: Spontaneous
  Country: EG (occurrence: EG)
  Receive Date: 20241009
  Receipt Date: 20241009
  Transmission Date: 20250114
  Serious: Yes (Hospitalization, Other)
  Sender: NOVO NORDISK
  Company Number: EG-NOVOPROD-1294092

PATIENT
  Sex: Female
  Weight: 31 kg

DRUGS (2)
  1. NOVORAPID [Suspect]
     Active Substance: INSULIN ASPART
     Indication: Type 1 diabetes mellitus
     Dosage: 31 IU, QD (5U AT BREAKFAST, 13U AT LUNCH AND 13U DINNER)
  2. TRESIBA [Suspect]
     Active Substance: INSULIN DEGLUDEC
     Indication: Type 1 diabetes mellitus
     Dosage: 14 IU, QD

REACTIONS (9)
  - Fatigue [Unknown]
  - Vomiting [Unknown]
  - Blood ketone body present [Unknown]
  - Pyrexia [Unknown]
  - Ear haemorrhage [Unknown]
  - Tympanic membrane perforation [Unknown]
  - Hyperglycaemia [Unknown]
  - Hyperglycaemia [Unknown]
  - Blood ketone body present [Unknown]

NARRATIVE: CASE EVENT DATE: 20231001
